FAERS Safety Report 26117235 (Version 1)
Quarter: 2025Q4

REPORT INFORMATION
  Report Type: Other
  Country: PS (occurrence: PS)
  Receive Date: 20251203
  Receipt Date: 20251203
  Transmission Date: 20260118
  Serious: Yes (Death, Hospitalization, Other)
  Sender: ANI
  Company Number: PS-ANIPHARMA-031244

PATIENT
  Age: 18 Year
  Sex: Female

DRUGS (1)
  1. CYCLOPHOSPHAMIDE [Suspect]
     Active Substance: CYCLOPHOSPHAMIDE
     Indication: Systemic lupus erythematosus

REACTIONS (6)
  - Cytomegalovirus infection [Fatal]
  - Disseminated intravascular coagulation [Fatal]
  - Colitis [Unknown]
  - Acute hepatic failure [Unknown]
  - Pancreatitis acute [Unknown]
  - Pneumonitis [Unknown]
